FAERS Safety Report 6127389-X (Version None)
Quarter: 2009Q1

REPORT INFORMATION
  Report Type: 
  Country: None (occurrence: None)
  Receive Date: 20090323
  Receipt Date: 20090312
  Transmission Date: 20090719
  Serious: Yes (Hospitalization)
  Sender: FDA-Public Use
  Company Number: PHHY2009FR09214

PATIENT
  Age: 2 Year
  Sex: Female

DRUGS (2)
  1. TRILEPTAL [Suspect]
     Indication: EPILEPSY
     Dosage: 50 MG, TID
     Dates: start: 20090209, end: 20090220
  2. SABRIL [Concomitant]
     Indication: EPILEPSY
     Dosage: UNK

REACTIONS (2)
  - ATAXIA [None]
  - STRABISMUS [None]
